FAERS Safety Report 8537119-X (Version None)
Quarter: 2012Q3

REPORT INFORMATION
  Report Type: 
  Country: None (occurrence: None)
  Receive Date: 20120725
  Receipt Date: 20120718
  Transmission Date: 20120928
  Serious: Yes (Hospitalization)
  Sender: FDA-Public Use
  Company Number: AT-PFIZER INC-2012174753

PATIENT
  Age: 74 Year
  Sex: Male
  Weight: 80 kg

DRUGS (13)
  1. GENOTROPIN [Suspect]
     Dosage: 0.5 MG, 1X/DAY 7/WK
     Route: 058
     Dates: start: 20050517, end: 20070830
  2. LEVOTHYROXINE SODIUM [Concomitant]
     Indication: PRIMARY HYPOTHYROIDISM
  3. ASPIRIN [Concomitant]
     Indication: ESSENTIAL HYPERTENSION
     Dosage: UNK
     Dates: start: 20070807
  4. TESTOSTERONE [Concomitant]
     Indication: BLOOD LUTEINISING HORMONE
     Dosage: UNK
     Dates: start: 20070807
  5. LEVOTHYROXINE SODIUM [Concomitant]
     Indication: BLOOD THYROID STIMULATING HORMONE DECREASED
     Dosage: UNK
     Dates: start: 20070807
  6. PANTOLOC ^BYK^ [Concomitant]
     Indication: DUODENITIS
  7. PANTOLOC ^BYK^ [Concomitant]
     Indication: GASTRITIS
     Dosage: UNK
     Dates: start: 20070807
  8. TESTOSTERONE [Concomitant]
     Indication: HYPOGONADISM MALE
  9. HYDROCORTISONE [Concomitant]
     Indication: BLOOD CORTICOTROPHIN DECREASED
     Dosage: UNK
     Dates: start: 20070807
  10. THROMBO [Concomitant]
     Indication: CAROTID ARTERY STENOSIS
     Dosage: UNK
     Dates: start: 20041015
  11. LESCOL [Concomitant]
     Indication: HYPERLIPIDAEMIA
     Dosage: UNK
     Dates: start: 20070807
  12. TESTOSTERONE [Concomitant]
     Indication: BLOOD FOLLICLE STIMULATING HORMONE
  13. SEROQUEL [Concomitant]
     Indication: DEPRESSION
     Dosage: UNK
     Dates: start: 20070807

REACTIONS (1)
  - TONGUE NEOPLASM MALIGNANT STAGE UNSPECIFIED [None]
